FAERS Safety Report 8016097-6 (Version None)
Quarter: 2011Q4

REPORT INFORMATION
  Report Type: 
  Country: None (occurrence: None)
  Receive Date: 20111230
  Receipt Date: 20111221
  Transmission Date: 20120403
  Serious: Yes (Hospitalization)
  Sender: FDA-Public Use
  Company Number: FR-BRISTOL-MYERS SQUIBB COMPANY-16313058

PATIENT
  Age: 48 Year
  Sex: Male
  Weight: 68 kg

DRUGS (1)
  1. CEFEPIME HYDROCHLORIDE [Suspect]
     Indication: SEPSIS
     Route: 042
     Dates: start: 20111122, end: 20111203

REACTIONS (1)
  - DRUG ADMINISTRATION ERROR [None]
